FAERS Safety Report 21362854 (Version 3)
Quarter: 2022Q4

REPORT INFORMATION
  Report Type: Spontaneous
  Country: US (occurrence: US)
  Receive Date: 20220922
  Receipt Date: 20221129
  Transmission Date: 20230112
  Serious: No
  Sender: FDA-Public Use
  Company Number: US-Calliditas-2022CAL00320

PATIENT
  Age: 47 Year
  Sex: Male

DRUGS (3)
  1. TARPEYO [Suspect]
     Active Substance: BUDESONIDE
     Indication: Haematuria
     Dosage: 16 MG (4 MG CAPSULES) ONCE DAILY
     Route: 048
     Dates: start: 20220715
  2. BUMEX [Concomitant]
     Active Substance: BUMETANIDE
  3. COLCHICINE [Concomitant]
     Active Substance: COLCHICINE

REACTIONS (6)
  - COVID-19 [Recovered/Resolved]
  - Renal pain [Unknown]
  - Blood pressure increased [Unknown]
  - Condition aggravated [Unknown]
  - Ageusia [Recovered/Resolved]
  - Anosmia [Recovered/Resolved]

NARRATIVE: CASE EVENT DATE: 20220801
